FAERS Safety Report 11664788 (Version 2)
Quarter: 2015Q4

REPORT INFORMATION
  Report Type: Report from Study
  Country: US (occurrence: US)
  Receive Date: 20151027
  Receipt Date: 20151029
  Transmission Date: 20160304
  Serious: No
  Sender: FDA-Public Use
  Company Number: PHHY2013US057305

PATIENT
  Age: 7 Year
  Sex: Male

DRUGS (3)
  1. EXJADE [Suspect]
     Active Substance: DEFERASIROX
     Dosage: 500 OT, UNK
     Route: 048
     Dates: start: 20140812, end: 20141119
  2. EXJADE [Suspect]
     Active Substance: DEFERASIROX
     Indication: HAEMOSIDEROSIS
     Dosage: 375 OT, UNK
     Route: 048
     Dates: start: 20090819, end: 20140403
  3. EXJADE [Suspect]
     Active Substance: DEFERASIROX
     Dosage: 500 OT, UNK
     Route: 048
     Dates: start: 20110205, end: 20130929

REACTIONS (2)
  - Pyrexia [Recovered/Resolved]
  - Pain [Recovered/Resolved]

NARRATIVE: CASE EVENT DATE: 20121227
